APPROVED DRUG PRODUCT: FLUOXETINE HYDROCHLORIDE
Active Ingredient: FLUOXETINE HYDROCHLORIDE
Strength: EQ 20MG BASE
Dosage Form/Route: CAPSULE;ORAL
Application: A074803 | Product #001
Applicant: BARR LABORATORIES INC
Approved: Aug 2, 2001 | RLD: No | RS: No | Type: DISCN